FAERS Safety Report 7478526-6 (Version None)
Quarter: 2011Q2

REPORT INFORMATION
  Report Type: 
  Country: None (occurrence: None)
  Receive Date: 20110505
  Receipt Date: 20110427
  Transmission Date: 20111010
  Serious: Yes (Other)
  Sender: FDA-Public Use
  Company Number: 1000020555

PATIENT
  Age: 29 Year
  Sex: Female

DRUGS (1)
  1. ESCITALOPRAM OXALATE [Suspect]
     Indication: DEPRESSION
     Dosage: 20 MG (20 MG 1 IN 1 D), ORAL
     Route: 048
     Dates: start: 20100101, end: 20110401

REACTIONS (5)
  - DIARRHOEA HAEMORRHAGIC [None]
  - COLITIS ULCERATIVE [None]
  - RECTAL DISCHARGE [None]
  - GASTROINTESTINAL OEDEMA [None]
  - GASTRIC DISORDER [None]
